FAERS Safety Report 16276301 (Version 2)
Quarter: 2019Q3

REPORT INFORMATION
  Report Type: Report from Study
  Country: US (occurrence: US)
  Receive Date: 20190505
  Receipt Date: 20190702
  Transmission Date: 20191004
  Serious: No
  Sender: FDA-Public Use
  Company Number: PHEH2019US019057

PATIENT
  Sex: Male

DRUGS (1)
  1. ENTRESTO [Suspect]
     Active Substance: SACUBITRIL\VALSARTAN
     Indication: CARDIAC FAILURE
     Dosage: UNK
     Route: 048

REACTIONS (7)
  - Swelling face [Unknown]
  - Constipation [Unknown]
  - Hypertension [Unknown]
  - Peripheral swelling [Recovered/Resolved]
  - Skin discolouration [Unknown]
  - Abdominal pain [Unknown]
  - Rash [Unknown]
